FAERS Safety Report 18843487 (Version 1)
Quarter: 2021Q1

REPORT INFORMATION
  Report Type: Spontaneous
  Country: US (occurrence: US)
  Receive Date: 20210204
  Receipt Date: 20210204
  Transmission Date: 20210419
  Serious: Yes (Other)
  Sender: FDA-Public Use
  Company Number: US-MYLANLABS-2021M1007159

PATIENT
  Age: 3 Decade
  Sex: Female

DRUGS (2)
  1. SODIUM CHLORIDE. [Suspect]
     Active Substance: SODIUM CHLORIDE
     Indication: INJECTION SITE ATROPHY
     Dosage: FOR 4 TOTAL INJECTIONS
     Route: 065
  2. TRIAMCINOLONE [Suspect]
     Active Substance: TRIAMCINOLONE
     Indication: PRODUCT USED FOR UNKNOWN INDICATION
     Dosage: 1 ML INJECTION OF 40 MG/ML
     Route: 030

REACTIONS (2)
  - Injection site atrophy [Recovered/Resolved]
  - Drug ineffective [Unknown]
